FAERS Safety Report 7496366-9 (Version None)
Quarter: 2011Q2

REPORT INFORMATION
  Report Type: 
  Country: None (occurrence: None)
  Receive Date: 20110523
  Receipt Date: 20110411
  Transmission Date: 20111010
  Serious: Yes (Disabling)
  Sender: FDA-Public Use
  Company Number: GB-TEVA-254229ISR

PATIENT
  Sex: Male

DRUGS (14)
  1. DOMPERIDONE [Concomitant]
     Indication: NAUSEA
     Dosage: 20 MILLIGRAM;
     Route: 048
     Dates: start: 20071128
  2. CYCLIZINE [Concomitant]
     Indication: PROPHYLAXIS
     Dosage: 50 MG, IN 1 DAY
     Route: 030
     Dates: start: 20081119
  3. LANSOPRAZOLE [Concomitant]
     Indication: PROPHYLAXIS
     Dosage: 30 MILLIGRAM;
     Route: 048
     Dates: start: 20080723
  4. OXYCODONE HCL [Concomitant]
     Indication: CANCER PAIN
     Dosage: 40 MILLIGRAM;
     Route: 048
     Dates: start: 20081006
  5. SENNA ALEXANDRINA [Concomitant]
     Indication: CONSTIPATION
     Route: 048
     Dates: start: 20081006
  6. ETORICOXIB [Concomitant]
     Dosage: 90 MILLIGRAM;
     Route: 048
     Dates: start: 20080723
  7. TAMSULOSIN HCL [Concomitant]
     Indication: URINARY RETENTION
     Dosage: 400 UG, 1 IN 1 DAY
     Route: 048
     Dates: start: 20081108
  8. PLACEBO [Suspect]
     Indication: PROSTATE CANCER METASTATIC
     Route: 048
     Dates: start: 20081105, end: 20090102
  9. METOCLOPRAMIDE HYDROCHLORIDE [Concomitant]
     Indication: NAUSEA
     Dosage: 10 MILLIGRAM;
     Route: 048
     Dates: start: 20081118
  10. ACETAMINOPHEN [Concomitant]
     Indication: CANCER PAIN
     Dosage: 1 GRAM;
     Route: 048
     Dates: start: 20081029
  11. LACTULOSE [Concomitant]
     Indication: CONSTIPATION
     Route: 048
     Dates: start: 20081013
  12. PREDNISOLONE [Suspect]
     Indication: PROSTATE CANCER METASTATIC
     Dosage: 5 MILLIGRAM;
     Route: 048
     Dates: start: 20081105
  13. MOVIPREP [Concomitant]
     Indication: CONSTIPATION
     Route: 048
     Dates: start: 20081118
  14. PROSTAP 3 [Concomitant]
     Indication: PROSTATE CANCER
     Dosage: 11.25 MG, 1 IN 3 MONTH
     Route: 058
     Dates: start: 20081105

REACTIONS (1)
  - SPINAL CORD COMPRESSION [None]
